FAERS Safety Report 7001498-5 (Version None)
Quarter: 2010Q3

REPORT INFORMATION
  Report Type: 
  Country: None (occurrence: None)
  Receive Date: 20100920
  Receipt Date: 20100913
  Transmission Date: 20110219
  Serious: Yes (Death, Other)
  Sender: FDA-Public Use
  Company Number: ES-ROCHE-727435

PATIENT
  Sex: Male

DRUGS (8)
  1. TRETINOIN [Suspect]
     Dosage: DRUG: ALL-TRANS-RETINOIC ACID (ATRA), INDUCTION THERAPY, FREQUENCY: PER DAY
     Route: 048
  2. TRETINOIN [Suspect]
     Dosage: MAINTENANCE THERAPY PER DAY FOR 15 DAYS EVERY 3 MONTHS FOR 2 YEARS
     Route: 048
  3. IDARUBICIN HCL [Suspect]
     Dosage: INDUCTION THERAPY, FREQUENCY: PER DAY ON DAYS 2,4,6 AND 8.
     Route: 040
  4. IDARUBICIN HCL [Suspect]
     Dosage: FIRST CONSOLIDATION CYCLE PER DAY FOR 4 DAYS
     Route: 040
  5. IDARUBICIN HCL [Suspect]
     Dosage: THIRD CONSOLIDATION CYCLE PER DAY FOR 1 DAY.
     Route: 040
  6. MITOXANTRONE [Suspect]
     Dosage: 2ND CONSOLIDATION CYCLE PER DAY FOR 5 DAYS.
     Route: 065
  7. MERCAPTOPURINE [Suspect]
     Dosage: MAINTENANCE THERAPY PER DAY FOR 15 DAYS
     Route: 048
  8. METHOTREXATE [Suspect]
     Dosage: MAINTENANCE THERAPY
     Route: 030

REACTIONS (2)
  - ACUTE MYELOID LEUKAEMIA [None]
  - MYELODYSPLASTIC SYNDROME [None]
